FAERS Safety Report 6383436-1 (Version None)
Quarter: 2009Q4

REPORT INFORMATION
  Report Type: 
  Country: None (occurrence: None)
  Receive Date: 20091001
  Receipt Date: 20070830
  Transmission Date: 20100525
  Serious: Yes (Other)
  Sender: FDA-Public Use
  Company Number: US-ASTRAZENECA-2006UW27785

PATIENT
  Age: 677 Month
  Sex: Female
  Weight: 78.5 kg

DRUGS (7)
  1. SEROQUEL [Suspect]
     Indication: INSOMNIA
     Route: 048
     Dates: start: 20040501, end: 20051101
  2. SEROQUEL [Suspect]
     Route: 048
     Dates: start: 20050104
  3. ANTIDEPRESSANTS [Concomitant]
     Indication: DEPRESSION
     Route: 048
     Dates: start: 19950101
  4. ORAL AGENTS FOR HYPERGLYCEMIA [Concomitant]
     Route: 048
  5. LEXAPRO [Concomitant]
     Dates: start: 20050514
  6. AMBIEN [Concomitant]
     Dates: start: 19991019
  7. PROTONIX [Concomitant]
     Dates: start: 20050514

REACTIONS (7)
  - DIABETES MELLITUS [None]
  - DIABETIC NEUROPATHY [None]
  - GLUCOSE TOLERANCE IMPAIRED [None]
  - HYPERTENSION [None]
  - INTERVERTEBRAL DISC PROTRUSION [None]
  - NEUROPATHY PERIPHERAL [None]
  - TYPE 2 DIABETES MELLITUS [None]
